FAERS Safety Report 9357549 (Version 1)
Quarter: 2013Q2

REPORT INFORMATION
  Report Type: Spontaneous
  Country: GB (occurrence: None)
  Receive Date: 20130617
  Receipt Date: 20130617
  Transmission Date: 20140414
  Serious: Yes (Hospitalization, Other)
  Sender: FDA-Public Use
  Company Number: 2013-2397

PATIENT
  Age: 31 Year
  Sex: Female
  Weight: 60 kg

DRUGS (1)
  1. BOTULINUM TOXIN [Suspect]
     Indication: HYPERHIDROSIS
     Dosage: (50 UNITS, 1 IN 1  CYCLE(S)), INTRADERMAL
     Route: 023
     Dates: start: 20121101, end: 20121101

REACTIONS (5)
  - Arrhythmia [None]
  - Chest discomfort [None]
  - Dyspnoea [None]
  - Palpitations [None]
  - Respiratory disorder [None]
